FAERS Safety Report 23768635 (Version 1)
Quarter: 2024Q2

REPORT INFORMATION
  Report Type: Spontaneous
  Country: PL (occurrence: PL)
  Receive Date: 20240422
  Receipt Date: 20240422
  Transmission Date: 20240716
  Serious: Yes (Hospitalization)
  Sender: FDA-Public Use
  Company Number: None

PATIENT
  Age: 58 Year
  Sex: Female
  Weight: 59 kg

DRUGS (1)
  1. GADOBUTROL [Suspect]
     Active Substance: GADOBUTROL
     Indication: Cranial nerve disorder
     Dosage: 5.5 ML, ONCE
     Route: 042
     Dates: start: 20240223, end: 20240223

REACTIONS (2)
  - Epilepsy [Recovering/Resolving]
  - Oral discharge [Recovering/Resolving]

NARRATIVE: CASE EVENT DATE: 20240223
